FAERS Safety Report 5881373-X (Version None)
Quarter: 2008Q3

REPORT INFORMATION
  Report Type: 
  Country: None (occurrence: None)
  Receive Date: 20080912
  Receipt Date: 20080627
  Transmission Date: 20090109
  Serious: No
  Sender: FDA-Public Use
  Company Number: US-ABBOTT-08P-163-0459923-00

PATIENT
  Sex: Female
  Weight: 74.91 kg

DRUGS (10)
  1. HUMIRA [Suspect]
     Indication: ARTHRITIS
     Route: 058
     Dates: start: 20080425
  2. PIOGLITAZONE HCL [Concomitant]
     Indication: DIABETES MELLITUS
     Route: 048
  3. CLONIDINE [Concomitant]
     Indication: HYPERTENSION
     Route: 048
  4. CARBEDILOL [Concomitant]
     Indication: HYPERTENSION
     Route: 048
     Dates: start: 20080101
  5. OMALIZUMAB [Concomitant]
     Indication: ASTHMA
     Route: 050
     Dates: start: 20070201
  6. OMALIZUMAB [Concomitant]
     Indication: HYPERSENSITIVITY
  7. AMLODIPINE [Concomitant]
     Indication: HYPERTENSION
     Route: 048
     Dates: start: 20080301
  8. SERETIDE [Concomitant]
     Indication: ASTHMA
     Route: 055
  9. ALBUTEROL SPIROS [Concomitant]
     Indication: ASTHMA
     Dosage: 2 PUFFS UP TO 4 TIMES PER DAY AS NEEDED
     Route: 055
  10. VITAMIN TAB [Concomitant]
     Indication: DRUG USE FOR UNKNOWN INDICATION

REACTIONS (3)
  - ABDOMINAL PAIN [None]
  - DIARRHOEA [None]
  - VOMITING [None]
